FAERS Safety Report 9719022 (Version 1)
Quarter: 2013Q4

REPORT INFORMATION
  Report Type: Spontaneous
  Country: GB (occurrence: None)
  Receive Date: 20131126
  Receipt Date: 20131126
  Transmission Date: 20140711
  Serious: Yes (Life-Threatening, Hospitalization)
  Sender: FDA-Public Use
  Company Number: 2013P1021425

PATIENT
  Age: 20 Year
  Sex: Male

DRUGS (2)
  1. LEVETIRACETAM [Suspect]
     Indication: TEMPORAL LOBE EPILEPSY
  2. CARBAMAZEPINE [Suspect]
     Indication: TEMPORAL LOBE EPILEPSY

REACTIONS (11)
  - Cardiac arrest [None]
  - Dysarthria [None]
  - Confusional state [None]
  - Agitation [None]
  - Intentional overdose [None]
  - Coma scale abnormal [None]
  - Hypotension [None]
  - Bundle branch block right [None]
  - Grand mal convulsion [None]
  - Ventricular tachycardia [None]
  - Haemodialysis [None]
